FAERS Safety Report 6114872-6 (Version None)
Quarter: 2009Q1

REPORT INFORMATION
  Report Type: 
  Country: None (occurrence: None)
  Receive Date: 20090311
  Receipt Date: 20080818
  Transmission Date: 20090719
  Serious: Yes (Other)
  Sender: FDA-Public Use
  Company Number: US200807001610

PATIENT
  Age: 79 Year
  Sex: Male

DRUGS (2)
  1. GEMZAR [Suspect]
     Indication: PANCREATIC CARCINOMA
     Dates: start: 20080601, end: 20080617
  2. GEMZAR [Suspect]
     Indication: PANCREATIC CARCINOMA
     Dates: start: 20080708

REACTIONS (1)
  - LIVER FUNCTION TEST ABNORMAL [None]
